FAERS Safety Report 13162762 (Version 3)
Quarter: 2017Q1

REPORT INFORMATION
  Report Type: Report from Study
  Country: BR (occurrence: BR)
  Receive Date: 20170130
  Receipt Date: 20170213
  Transmission Date: 20170428
  Serious: Yes (Death, Hospitalization)
  Sender: FDA-Public Use
  Company Number: BR-BIOGEN-2017BI00349693

PATIENT
  Sex: Female

DRUGS (1)
  1. AVONEX [Suspect]
     Active Substance: INTERFERON BETA-1A
     Indication: MULTIPLE SCLEROSIS
     Route: 030

REACTIONS (6)
  - Cerebrovascular accident [Fatal]
  - Decreased immune responsiveness [Fatal]
  - Post procedural infection [Fatal]
  - Malaise [Unknown]
  - Fall [Recovered/Resolved]
  - Pneumonia [Fatal]
